FAERS Safety Report 9651798 (Version 1)
Quarter: 2013Q4

REPORT INFORMATION
  Report Type: Spontaneous
  Country: US (occurrence: US)
  Receive Date: 20131029
  Receipt Date: 20131029
  Transmission Date: 20140711
  Serious: No
  Sender: FDA-Public Use
  Company Number: US-009507513-1310USA013211

PATIENT
  Sex: Male

DRUGS (1)
  1. AFRIN [Suspect]
     Indication: EAR DISCOMFORT
     Dosage: UNK, UNKNOWN
     Route: 045

REACTIONS (1)
  - Drug effect decreased [Unknown]
